FAERS Safety Report 7599491-7 (Version None)
Quarter: 2011Q3

REPORT INFORMATION
  Report Type: 
  Country: None (occurrence: None)
  Receive Date: 20110711
  Receipt Date: 20090731
  Transmission Date: 20111222
  Serious: Yes (Other)
  Sender: FDA-Public Use
  Company Number: US-BAYER-200928766NA

PATIENT
  Age: 71 Year
  Sex: Male
  Weight: 93 kg

DRUGS (15)
  1. AMIODARONE HCL [Concomitant]
  2. DIOVAN [Concomitant]
     Indication: HYPERTENSION
     Route: 048
  3. PHENYLEPHRINE HCL [Concomitant]
     Dosage: UNK
     Dates: start: 20050121
  4. EPINEPHRINE [Concomitant]
     Dosage: UNK
     Dates: start: 20050121
  5. TRASYLOL [Suspect]
     Indication: CORONARY ARTERY BYPASS
     Dosage: 50ML/HR INFUSION
     Route: 042
     Dates: start: 20050121, end: 20050121
  6. ZOCOR [Concomitant]
     Indication: HYPERCHOLESTEROLAEMIA
     Route: 048
  7. NITROGLYCERIN [Concomitant]
     Dosage: UNK
  8. ACETYLSALICYLIC ACID SRT [Concomitant]
  9. RED BLOOD CELLS [Concomitant]
     Dosage: 2 U, ONCE
     Route: 042
     Dates: start: 20050121
  10. HEPARIN [Concomitant]
     Dosage: UNK
     Dates: start: 20050121
  11. FENTANYL [Concomitant]
     Dosage: 5.8
     Route: 042
     Dates: start: 20050121
  12. PROTAMINE SULFATE [Concomitant]
     Dosage: 390 MG
     Dates: start: 20050121
  13. TRASYLOL [Suspect]
     Indication: PRODUCT USED FOR UNKNOWN INDICATION
     Dosage: 200ML LOADING DOSE
     Route: 042
     Dates: start: 20050121, end: 20050121
  14. TRASYLOL [Suspect]
     Dosage: 200 ML PUMP PRIME
     Dates: start: 20050121, end: 20050121
  15. ZEBETA [Concomitant]
     Indication: HYPERTENSION

REACTIONS (10)
  - RENAL IMPAIRMENT [None]
  - EMOTIONAL DISTRESS [None]
  - RENAL INJURY [None]
  - PAIN [None]
  - FEAR [None]
  - RENAL FAILURE [None]
  - ANXIETY [None]
  - CARDIOGENIC SHOCK [None]
  - INJURY [None]
  - STRESS [None]
